FAERS Safety Report 9966970 (Version 1)
Quarter: 2014Q1

REPORT INFORMATION
  Report Type: Spontaneous
  Country: CZ (occurrence: CZ)
  Receive Date: 20140305
  Receipt Date: 20140305
  Transmission Date: 20141002
  Serious: Yes (Other)
  Sender: FDA-Public Use
  Company Number: CZ-OTSUKA-US-2014-10417

PATIENT
  Sex: 0

DRUGS (1)
  1. BUSULFEX [Suspect]
     Indication: STEM CELL TRANSPLANT
     Dosage: BODY WEIGHT BASIS ACCORDING TO PROTOCOL
     Route: 042

REACTIONS (3)
  - Venoocclusive disease [Unknown]
  - Neurotoxicity [Unknown]
  - Disease progression [Unknown]
